FAERS Safety Report 13637439 (Version 1)
Quarter: 2017Q2

REPORT INFORMATION
  Report Type: Spontaneous
  Country: US (occurrence: US)
  Receive Date: 20170608
  Receipt Date: 20170608
  Transmission Date: 20170830
  Serious: No
  Sender: FDA-Public Use
  Company Number: None

PATIENT
  Sex: Female

DRUGS (1)
  1. NEXAVAR [Suspect]
     Active Substance: SORAFENIB
     Indication: METASTASES TO BONE
     Dosage: 2 TABLETS (400MG) TWICE A DAY BY MOUTH
     Route: 048
     Dates: start: 20161212

REACTIONS (1)
  - Alopecia [None]
